FAERS Safety Report 25786071 (Version 1)
Quarter: 2025Q3

REPORT INFORMATION
  Report Type: Spontaneous
  Country: CN (occurrence: CN)
  Receive Date: 20250910
  Receipt Date: 20250910
  Transmission Date: 20251020
  Serious: Yes (Other)
  Sender: GLAND PHARMA LTD
  Company Number: CN-GLANDPHARMA-CN-2025GLNLIT01820

PATIENT

DRUGS (3)
  1. GEMCITABINE [Suspect]
     Active Substance: GEMCITABINE
     Indication: Bile duct cancer
     Route: 065
  2. OXALIPLATIN [Suspect]
     Active Substance: OXALIPLATIN
     Indication: Bile duct cancer
     Route: 065
  3. LENVATINIB [Suspect]
     Active Substance: LENVATINIB
     Indication: Bile duct cancer
     Route: 065

REACTIONS (3)
  - Renal injury [Unknown]
  - Fatigue [Unknown]
  - Product use in unapproved indication [Unknown]
